FAERS Safety Report 14251276 (Version 2)
Quarter: 2018Q1

REPORT INFORMATION
  Report Type: Spontaneous
  Country: US (occurrence: US)
  Receive Date: 20171205
  Receipt Date: 20180112
  Transmission Date: 20180508
  Serious: Yes (Other)
  Sender: FDA-Public Use
  Company Number: US-TEVA-2017-US-827773

PATIENT
  Age: 30 Year
  Sex: Female
  Weight: 74 kg

DRUGS (5)
  1. PARAGARD T 380A [Suspect]
     Active Substance: COPPER
     Indication: CONTRACEPTION
     Route: 065
     Dates: start: 20171013
  2. COLACE [Concomitant]
     Active Substance: DOCUSATE SODIUM
  3. PRENATAL VITAMINS [Concomitant]
     Active Substance: VITAMINS
  4. CALCIUM [Concomitant]
     Active Substance: CALCIUM
  5. ZYRTEC [Concomitant]
     Active Substance: CETIRIZINE HYDROCHLORIDE
     Indication: HYPERSENSITIVITY

REACTIONS (3)
  - Device expulsion [Not Recovered/Not Resolved]
  - Exposure via breast milk [Unknown]
  - Uterine perforation [Recovered/Resolved]

NARRATIVE: CASE EVENT DATE: 20171013
